FAERS Safety Report 11490068 (Version 3)
Quarter: 2015Q4

REPORT INFORMATION
  Report Type: Report from Study
  Country: GT (occurrence: GT)
  Receive Date: 20150910
  Receipt Date: 20151002
  Transmission Date: 20160304
  Serious: Yes (Other)
  Sender: FDA-Public Use
  Company Number: PHHY2015GT100170

PATIENT
  Age: 48 Year
  Sex: Female

DRUGS (1)
  1. GILENYA [Suspect]
     Active Substance: FINGOLIMOD HYDROCHLORIDE
     Indication: PRODUCT USED FOR UNKNOWN INDICATION
     Dosage: 0.5 MG, UNK
     Route: 065
     Dates: end: 20150902

REACTIONS (10)
  - Malaise [Unknown]
  - Anxiety [Unknown]
  - Drug level increased [Unknown]
  - Liver disorder [Unknown]
  - Multiple sclerosis relapse [Unknown]
  - Central nervous system lesion [Unknown]
  - Poverty of speech [Unknown]
  - Fatigue [Unknown]
  - Gait disturbance [Unknown]
  - Movement disorder [Unknown]
